FAERS Safety Report 7502441-2 (Version None)
Quarter: 2011Q2

REPORT INFORMATION
  Report Type: 
  Country: None (occurrence: None)
  Receive Date: 20110525
  Receipt Date: 20110513
  Transmission Date: 20111010
  Serious: Yes (Other)
  Sender: FDA-Public Use
  Company Number: FR-JNJFOC-20110506528

PATIENT
  Sex: Male

DRUGS (1)
  1. NICORETTE [Suspect]
     Indication: SMOKING CESSATION THERAPY
     Dosage: 20 GUMS IN ONE DAY
     Route: 048
     Dates: start: 20110325, end: 20110325

REACTIONS (4)
  - PANIC ATTACK [None]
  - ABDOMINAL PAIN [None]
  - CONSTIPATION [None]
  - OVERDOSE [None]
